FAERS Safety Report 22229556 (Version 3)
Quarter: 2023Q2

REPORT INFORMATION
  Report Type: Spontaneous
  Country: US (occurrence: US)
  Receive Date: 20230419
  Receipt Date: 20230621
  Transmission Date: 20230722
  Serious: No
  Sender: FDA-Public Use
  Company Number: US-PFIZER INC-PV202300070198

PATIENT
  Age: 81 Year
  Sex: Female

DRUGS (25)
  1. DOFETILIDE [Suspect]
     Active Substance: DOFETILIDE
     Indication: Atrial fibrillation
     Dosage: 250 UG, 2X/DAY, (9AM + 9PM)
     Route: 048
     Dates: start: 2000
  2. DOFETILIDE [Suspect]
     Active Substance: DOFETILIDE
     Indication: Heart rate irregular
  3. ALDACTONE [Concomitant]
     Active Substance: SPIRONOLACTONE
     Indication: Diuretic therapy
     Dosage: 25 MG, DAILY
  4. ALTACE [Concomitant]
     Active Substance: RAMIPRIL
     Indication: Blood pressure management
     Dosage: 5 MG, DAILY
  5. AZELASTINE HYDROCHLORIDE [Concomitant]
     Active Substance: AZELASTINE HYDROCHLORIDE
     Dosage: 1DF, 2X/DAY, (1 SPRAY IN EACH NOSTRIL)
     Route: 045
  6. AREDS 2 VISUAL ADVANTAGE [Concomitant]
     Indication: Visual impairment
     Dosage: UNK, 2X/DAY
  7. BAYER ASPIRIN [Concomitant]
     Active Substance: ASPIRIN
     Indication: Thrombosis
     Dosage: 81 MG, DAILY
  8. BREO ELLIPTA [Concomitant]
     Active Substance: FLUTICASONE FUROATE\VILANTEROL TRIFENATATE
     Indication: Dyspnoea
     Dosage: UNK, DAILY, (100 MCG/25MCG 1 PUFF Q.D.)
     Route: 055
  9. CALCIUM CARBONATE\CHOLECALCIFEROL [Concomitant]
     Active Substance: CALCIUM CARBONATE\CHOLECALCIFEROL
     Dosage: 1000 MG, DAILY, (500MGX2 QD)
  10. CYMBALTA [Concomitant]
     Active Substance: DULOXETINE HYDROCHLORIDE
     Dosage: 60 MG, DAILY
  11. ELIQUIS [Concomitant]
     Active Substance: APIXABAN
     Indication: Atrial fibrillation
     Dosage: 5 MG, 2X/DAY
  12. ELIQUIS [Concomitant]
     Active Substance: APIXABAN
     Indication: Anticoagulant therapy
  13. FLUTICASONE [Concomitant]
     Active Substance: FLUTICASONE
     Dosage: 1 DF, DAILY, (1 SPRAY IN EACH NOSTRIL Q.D.)
     Route: 045
  14. GABAPENTIN [Concomitant]
     Active Substance: GABAPENTIN
     Indication: Neuropathy peripheral
     Dosage: 300 MG, 3X/DAY
  15. JANUMET [Concomitant]
     Active Substance: METFORMIN HYDROCHLORIDE\SITAGLIPTIN PHOSPHATE
     Indication: Type 2 diabetes mellitus
     Dosage: UNK, DAILY, (50-500 MG)
  16. METOPROLOL SUCCINATE [Concomitant]
     Active Substance: METOPROLOL SUCCINATE
     Indication: Blood pressure management
     Dosage: 50 MG, DAILY, (ER)
  17. NEXIUM [Concomitant]
     Active Substance: ESOMEPRAZOLE MAGNESIUM
     Indication: Reflux gastritis
     Dosage: 40 MG, DAILY
  18. PLAQUENIL [Concomitant]
     Active Substance: HYDROXYCHLOROQUINE SULFATE
     Indication: Arthritis
     Dosage: 200 MG, 2X/DAY
  19. PROLIA [Concomitant]
     Active Substance: DENOSUMAB
     Dosage: UNK, (ANNUALLY (IN MAR))
  20. SINGULAIR [Concomitant]
     Active Substance: MONTELUKAST SODIUM
     Dosage: 10 MG, DAILY
  21. SLO-MAG [Concomitant]
     Indication: Cardiac disorder
     Dosage: UNK, 2X/DAY
  22. HERBALS\TURMERIC [Concomitant]
     Active Substance: HERBALS\TURMERIC
     Indication: Arthritis
     Dosage: UNK, DAILY
  23. VITAMIN D3 [Concomitant]
     Active Substance: CHOLECALCIFEROL
     Dosage: 2000 IU, DAILY
  24. VITAMIN C [Concomitant]
     Active Substance: ASCORBIC ACID
     Dosage: 2000 IU, DAILY
  25. VALACYCLOVIR [Concomitant]
     Active Substance: VALACYCLOVIR HYDROCHLORIDE
     Dosage: 1 G, AS NEEDED, (T.I.D)

REACTIONS (1)
  - Rhinorrhoea [Not Recovered/Not Resolved]

NARRATIVE: CASE EVENT DATE: 20230101
